FAERS Safety Report 7375923-4 (Version None)
Quarter: 2011Q1

REPORT INFORMATION
  Report Type: 
  Country: None (occurrence: None)
  Receive Date: 20110325
  Receipt Date: 20110317
  Transmission Date: 20110831
  Serious: Yes (Hospitalization)
  Sender: FDA-Public Use
  Company Number: B0708494A

PATIENT
  Sex: Male

DRUGS (4)
  1. THALIDOMIDE [Suspect]
     Indication: MULTIPLE MYELOMA
     Route: 048
     Dates: start: 20101216
  2. ASPIRIN [Concomitant]
  3. MELPHALAN [Suspect]
     Indication: MULTIPLE MYELOMA
     Route: 048
     Dates: start: 20101216
  4. PREDNISONE [Suspect]
     Indication: MULTIPLE MYELOMA
     Dosage: 110MG PER DAY
     Route: 048
     Dates: start: 20101216

REACTIONS (11)
  - BLOOD CREATININE DECREASED [None]
  - WHITE BLOOD CELL COUNT DECREASED [None]
  - NEUTROPHIL COUNT DECREASED [None]
  - ABDOMINAL PAIN UPPER [None]
  - ATELECTASIS [None]
  - PLATELET COUNT DECREASED [None]
  - CARDIOMEGALY [None]
  - DIARRHOEA [None]
  - LYMPHOCYTE COUNT DECREASED [None]
  - NAUSEA [None]
  - HAEMOGLOBIN DECREASED [None]
